FAERS Safety Report 8561481-5 (Version None)
Quarter: 2012Q3

REPORT INFORMATION
  Report Type: 
  Country: None (occurrence: None)
  Receive Date: 20120802
  Receipt Date: 20120726
  Transmission Date: 20120928
  Serious: Yes (Other)
  Sender: FDA-Public Use
  Company Number: US-ALLERGAN-1210364US

PATIENT
  Age: 5 Year
  Sex: Male
  Weight: 15 kg

DRUGS (1)
  1. BOTULINUM TOXIN TYPE A [Suspect]
     Indication: PRODUCT USED FOR UNKNOWN INDICATION
     Dosage: 200 UNITS, SINGLE
     Route: 030
     Dates: start: 20120526, end: 20120526

REACTIONS (6)
  - MUSCLE TWITCHING [None]
  - VOMITING [None]
  - SWOLLEN TONGUE [None]
  - ERYTHEMA [None]
  - COUGH [None]
  - SWELLING FACE [None]
